FAERS Safety Report 7627524-8 (Version None)
Quarter: 2011Q3

REPORT INFORMATION
  Report Type: 
  Country: None (occurrence: None)
  Receive Date: 20110721
  Receipt Date: 20110715
  Transmission Date: 20111222
  Serious: Yes (Hospitalization)
  Sender: FDA-Public Use
  Company Number: US-GILEAD-2011-0041902

PATIENT
  Sex: Female

DRUGS (2)
  1. FLOLAN [Suspect]
  2. LETAIRIS [Suspect]
     Indication: PRODUCT USED FOR UNKNOWN INDICATION
     Route: 048
     Dates: start: 20101001

REACTIONS (6)
  - ABDOMINAL PAIN UPPER [None]
  - VOMITING [None]
  - PAIN IN EXTREMITY [None]
  - HEADACHE [None]
  - BACK PAIN [None]
  - DIARRHOEA [None]
